FAERS Safety Report 6713988-0 (Version None)
Quarter: 2010Q2

REPORT INFORMATION
  Report Type: 
  Country: None (occurrence: None)
  Receive Date: 20100506
  Receipt Date: 20100427
  Transmission Date: 20101027
  Serious: Yes (Other)
  Sender: FDA-Public Use
  Company Number: SE-PFIZER INC-2010052799

PATIENT
  Age: 78 Year
  Sex: Male

DRUGS (9)
  1. LYRICA [Suspect]
     Indication: NEURALGIA
     Dosage: 100 MG, PER DAY
     Dates: start: 20090101
  2. TEGRETOL [Concomitant]
     Dosage: UNK
  3. GLIBENCLAMIDE [Concomitant]
     Dosage: UNK
  4. AMLODIPINE [Concomitant]
     Dosage: UNK
  5. ATENOLAN [Concomitant]
     Dosage: UNK
  6. TRADOLAN [Concomitant]
     Dosage: UNK
  7. ALVEDON FORTE [Concomitant]
     Dosage: UNK
  8. OXASCAND [Concomitant]
     Dosage: UNK
  9. ZOPICLONE [Concomitant]
     Dosage: UNK

REACTIONS (3)
  - DYSSTASIA [None]
  - GAIT DISTURBANCE [None]
  - MUSCLE TWITCHING [None]
